FAERS Safety Report 9569577 (Version 1)
Quarter: 2013Q3

REPORT INFORMATION
  Report Type: Spontaneous
  Country: US (occurrence: US)
  Receive Date: 20130930
  Receipt Date: 20130930
  Transmission Date: 20140515
  Serious: No
  Sender: FDA-Public Use
  Company Number: US-AMGEN-USASP2013066223

PATIENT
  Age: 64 Year
  Sex: Female
  Weight: 84.81 kg

DRUGS (19)
  1. ENBREL [Suspect]
     Indication: PRODUCT USED FOR UNKNOWN INDICATION
     Dosage: 50 MG, QWK
     Route: 058
  2. PREDNISONE [Concomitant]
     Dosage: 1 MG, UNK
  3. LEVOTHYROXINE [Concomitant]
     Dosage: 75 MUG, UNK
  4. LISINOPRIL AND HYDROCHLOROTHIAZIDE [Concomitant]
     Dosage: 20-12.5
  5. AMLODIPINE/BENAZEPRIL [Concomitant]
     Dosage: 10-20 MG, UNK
  6. ESTROPLUS [Concomitant]
     Dosage: UNK
  7. MONTELUKAST [Concomitant]
     Dosage: 10 MG, UNK
  8. METHOTREXATE [Concomitant]
     Dosage: 2.5 MG, UNK
  9. FOLIC ACID [Concomitant]
     Dosage: UNK
  10. CLARITIN-D [Concomitant]
     Dosage: 10-240 MG, UNK
  11. PROAIR HFA [Concomitant]
     Dosage: UNK
  12. ASMANEX [Concomitant]
     Dosage: 220 MUG, UNK
  13. TRAVATAN [Concomitant]
     Dosage: 0.004 %, UNK
  14. AZOPT [Concomitant]
     Dosage: 1 %, UNK
  15. FISH OIL [Concomitant]
     Dosage: UNK
  16. COQ 10 [Concomitant]
     Dosage: 100 MG, UNK
  17. LUTEIN                             /01638501/ [Concomitant]
     Dosage: 40 MG, UNK
  18. VITAMIN C                          /00008001/ [Concomitant]
     Dosage: 500 MG, UNK
  19. FLUTICASONE [Concomitant]
     Dosage: 50 MUG, UNK

REACTIONS (2)
  - Drug effect incomplete [Unknown]
  - Blood test abnormal [Unknown]
